FAERS Safety Report 25713570 (Version 1)
Quarter: 2025Q3

REPORT INFORMATION
  Report Type: Spontaneous
  Country: US (occurrence: US)
  Receive Date: 20250822
  Receipt Date: 20250822
  Transmission Date: 20251020
  Serious: No
  Sender: UNIQUE PHARMACEUTICALS
  Company Number: US-UniquePharma-US-2025UPLSPO00093

PATIENT

DRUGS (1)
  1. ATENOLOL [Suspect]
     Active Substance: ATENOLOL
     Indication: Blood pressure abnormal
     Route: 065

REACTIONS (4)
  - Hypertension [Unknown]
  - Hypotension [Unknown]
  - Bradycardia [Unknown]
  - Drug ineffective [Unknown]
